FAERS Safety Report 5166505-3 (Version None)
Quarter: 2006Q4

REPORT INFORMATION
  Report Type: 
  Country: None (occurrence: None)
  Receive Date: 20061129
  Receipt Date: 20061121
  Transmission Date: 20070319
  Serious: Yes (Life-Threatening)
  Sender: FDA-Public Use
  Company Number: 2006SP005317

PATIENT
  Age: 62 Year
  Sex: Male

DRUGS (2)
  1. TEMODAL [Suspect]
     Indication: GLIOMA
     Dosage: 260 MG; QD; PO
     Route: 048
     Dates: start: 20061005, end: 20061010
  2. TEMODAL [Suspect]
     Indication: NEOPLASM RECURRENCE
     Dosage: 260 MG; QD; PO
     Route: 048
     Dates: start: 20061005, end: 20061010

REACTIONS (2)
  - PNEUMOCYSTIS JIROVECI PNEUMONIA [None]
  - PNEUMONIA CYTOMEGALOVIRAL [None]
